FAERS Safety Report 17994052 (Version 2)
Quarter: 2020Q4

REPORT INFORMATION
  Report Type: Spontaneous
  Country: US (occurrence: US)
  Receive Date: 20200708
  Receipt Date: 20201213
  Transmission Date: 20210113
  Serious: Yes (Other)
  Sender: FDA-Public Use
  Company Number: US-TEVA-2020-US-1798630

PATIENT
  Sex: Female

DRUGS (8)
  1. METFORMIN [Concomitant]
     Active Substance: METFORMIN HYDROCHLORIDE
     Indication: DIABETES MELLITUS
     Dates: end: 2013
  2. ATORVASTATIN [Concomitant]
     Active Substance: ATORVASTATIN
  3. TEMAZEPAM. [Concomitant]
     Active Substance: TEMAZEPAM
  4. DIOVAN [Concomitant]
     Active Substance: VALSARTAN
     Indication: HYPERTENSION
     Dosage: DOSAGE: 320-12.5MG
     Dates: start: 2010, end: 2013
  5. VALSARTAN W/HYDROCHLOROTHIAZIDE ACTAVIS [Suspect]
     Active Substance: HYDROCHLOROTHIAZIDE\VALSARTAN
     Indication: HYPERTENSION
     Dosage: DOSAGE: 320-12.5 MG
     Route: 065
     Dates: start: 20141020, end: 20180403
  6. METOPROLOL ER [Concomitant]
     Active Substance: METOPROLOL SUCCINATE
  7. VALSARTAN/HYDROCHLOROTHIAZIDE MYLAN [Suspect]
     Active Substance: HYDROCHLOROTHIAZIDE\VALSARTAN
     Indication: HYPERTENSION
     Dosage: DOSAGE: 320-12.5 MG
     Route: 065
     Dates: start: 20130617, end: 20130915
  8. LISINOPRIL. [Concomitant]
     Active Substance: LISINOPRIL
     Indication: HYPERTENSION
     Dosage: 20 MILLIGRAM DAILY; 20MG; ONCE A DAY

REACTIONS (2)
  - Breast cancer [Not Recovered/Not Resolved]
  - Lymphoma [Not Recovered/Not Resolved]
